FAERS Safety Report 20443481 (Version 2)
Quarter: 2022Q2

REPORT INFORMATION
  Report Type: Spontaneous
  Country: US (occurrence: US)
  Receive Date: 20220208
  Receipt Date: 20220404
  Transmission Date: 20220721
  Serious: No
  Sender: FDA-Public Use
  Company Number: US-GW PHARMA-202202USGW00525

PATIENT
  Age: 35 Year
  Sex: Male

DRUGS (2)
  1. EPIDIOLEX [Suspect]
     Active Substance: CANNABIDIOL
     Indication: Lennox-Gastaut syndrome
     Dosage: 500 MG, FREQUENCY NOT REPORTED
     Route: 048
     Dates: start: 202112
  2. EPIDIOLEX [Suspect]
     Active Substance: CANNABIDIOL
     Indication: Status epilepticus
     Dosage: 250 MILLIGRAM, BID, DOSE DECREASED
     Route: 048
     Dates: start: 202201

REACTIONS (8)
  - Yellow skin [Unknown]
  - Oral candidiasis [Unknown]
  - Hepatic cyst [Unknown]
  - Renal cyst [Unknown]
  - Frequent bowel movements [Unknown]
  - Pollakiuria [Unknown]
  - Abdominal pain upper [Unknown]
  - Abnormal behaviour [Unknown]

NARRATIVE: CASE EVENT DATE: 20220301
